FAERS Safety Report 10491085 (Version 1)
Quarter: 2014Q4

REPORT INFORMATION
  Report Type: Spontaneous
  Country: US (occurrence: US)
  Receive Date: 20141002
  Receipt Date: 20141002
  Transmission Date: 20150528
  Serious: No
  Sender: FDA-Public Use
  Company Number: US-GLAXOSMITHKLINE-A1047152A

PATIENT
  Sex: Female

DRUGS (8)
  1. ADVAIR HFA [Suspect]
     Active Substance: FLUTICASONE PROPIONATE\SALMETEROL XINAFOATE
     Indication: ASTHMA
     Dosage: 1PUFF VARIABLE DOSE
     Route: 055
  2. COQ10 [Concomitant]
     Active Substance: UBIDECARENONE
  3. DILTIAZEM [Concomitant]
     Active Substance: DILTIAZEM
  4. VITAMIN D [Concomitant]
     Active Substance: CHOLECALCIFEROL
  5. SIMVASTATIN. [Concomitant]
     Active Substance: SIMVASTATIN
  6. WARFARIN [Concomitant]
     Active Substance: WARFARIN
  7. VENTOLIN [Concomitant]
     Active Substance: ALBUTEROL SULFATE
  8. DIGOXIN. [Concomitant]
     Active Substance: DIGOXIN

REACTIONS (2)
  - Dyspnoea [Unknown]
  - Underdose [Unknown]
